FAERS Safety Report 14015718 (Version 1)
Quarter: 2017Q3

REPORT INFORMATION
  Report Type: Spontaneous
  Country: US (occurrence: US)
  Receive Date: 20170927
  Receipt Date: 20170927
  Transmission Date: 20171128
  Serious: Yes (Other)
  Sender: FDA-Public Use
  Company Number: None

PATIENT
  Age: 62 Year
  Sex: Female
  Weight: 58.5 kg

DRUGS (7)
  1. VIBRAMYCIN [Suspect]
     Active Substance: DOXYCYCLINE
     Indication: ARTHROPOD BITE
     Dosage: ?          QUANTITY:14 CAPSULE(S);?
     Route: 048
     Dates: start: 20170823, end: 20170830
  2. LOSINAPRIL [Concomitant]
  3. VITAMIN D [Concomitant]
     Active Substance: CHOLECALCIFEROL
  4. COZAAR [Concomitant]
     Active Substance: LOSARTAN POTASSIUM
  5. VIBRAMYCIN [Suspect]
     Active Substance: DOXYCYCLINE
     Indication: INFECTION
     Dosage: ?          QUANTITY:14 CAPSULE(S);?
     Route: 048
     Dates: start: 20170823, end: 20170830
  6. FISH OIL [Concomitant]
     Active Substance: FISH OIL
  7. KEFLEX [Suspect]
     Active Substance: CEPHALEXIN
     Indication: DRUG THERAPY
     Dosage: ?          QUANTITY:30 CAPSULE(S);?
     Route: 048
     Dates: start: 20170828, end: 20170912

REACTIONS (4)
  - Erythema [None]
  - Nervousness [None]
  - Blister [None]
  - Sunburn [None]

NARRATIVE: CASE EVENT DATE: 20170823
